FAERS Safety Report 5224281-X (Version None)
Quarter: 2007Q1

REPORT INFORMATION
  Report Type: 
  Country: None (occurrence: None)
  Receive Date: 20070130
  Receipt Date: 20070122
  Transmission Date: 20070707
  Serious: Yes (Death)
  Sender: FDA-Public Use
  Company Number: SK-ELI_LILLY_AND_COMPANY-SK200701003728

PATIENT
  Age: 67 Year
  Sex: Female
  Weight: 77 kg

DRUGS (9)
  1. HUMULIN 70/30 [Suspect]
     Indication: DIABETES MELLITUS NON-INSULIN-DEPENDENT
     Dosage: 52 IU, DAILY (1/D)
     Route: 058
     Dates: start: 20050101, end: 20060901
  2. TRITACE [Concomitant]
     Dosage: 5 MG, UNK
     Route: 048
  3. TRIMETAZIDINE [Concomitant]
     Dosage: 20 MG, 3/D
     Route: 048
  4. CORVATON RETARD [Concomitant]
     Dosage: 8 MG, EACH MORNING
     Route: 048
  5. CORVATON RETARD [Concomitant]
     Dosage: 4 MG, EACH EVENING
     Route: 048
  6. FUROSEMIDE [Concomitant]
     Dosage: 40 MG, DAILY (1/D)
     Route: 048
  7. ANOPYRIN [Concomitant]
     Dosage: 100 MG, DAILY (1/D)
     Route: 048
  8. TORVAST [Concomitant]
     Dosage: 20 MG, EACH EVENING
     Route: 048
  9. CORVITOL [Concomitant]
     Dosage: 50 UNK, DAILY (1/D)
     Route: 048

REACTIONS (1)
  - MYOCARDIAL INFARCTION [None]
